FAERS Safety Report 14473439 (Version 1)
Quarter: 2018Q1

REPORT INFORMATION
  Report Type: Spontaneous
  Country: GB (occurrence: GB)
  Receive Date: 20180201
  Receipt Date: 20180201
  Transmission Date: 20180509
  Serious: Yes (Other)
  Sender: FDA-Public Use
  Company Number: GB-AUROBINDO-AUR-APL-2018-004067

PATIENT
  Age: 25 Year
  Sex: Female
  Weight: 67 kg

DRUGS (1)
  1. CITALOPRAM [Suspect]
     Active Substance: CITALOPRAM HYDROBROMIDE
     Indication: DEPRESSION
     Dosage: 20 MG, UNK
     Route: 048
     Dates: start: 20160916

REACTIONS (14)
  - Muscle twitching [Recovering/Resolving]
  - Bruxism [Not Recovered/Not Resolved]
  - Irritability [Unknown]
  - Insomnia [Recovering/Resolving]
  - Trismus [Unknown]
  - Abnormal dreams [Not Recovered/Not Resolved]
  - Anxiety [Recovering/Resolving]
  - Mood swings [Unknown]
  - Increased appetite [Recovering/Resolving]
  - Somnolence [Recovering/Resolving]
  - Dizziness [Recovering/Resolving]
  - Anorgasmia [Recovered/Resolved]
  - Temporomandibular joint syndrome [Unknown]
  - Pain in jaw [Unknown]
